FAERS Safety Report 15211572 (Version 1)
Quarter: 2018Q3

REPORT INFORMATION
  Report Type: Spontaneous
  Country: US (occurrence: US)
  Receive Date: 20180702
  Receipt Date: 20180702
  Transmission Date: 20181010
  Serious: No
  Sender: FDA-Public Use
  Company Number: None

PATIENT
  Age: 4 Year
  Sex: Female
  Weight: 15.75 kg

DRUGS (2)
  1. LOTRIMIN ULTRA [Suspect]
     Active Substance: BUTENAFINE HYDROCHLORIDE
     Indication: DERMATITIS DIAPER
     Route: 061
     Dates: start: 20180630, end: 20180701
  2. LOTRIMIN ULTRA [Suspect]
     Active Substance: BUTENAFINE HYDROCHLORIDE
     Indication: FUNGAL INFECTION
     Route: 061
     Dates: start: 20180630, end: 20180701

REACTIONS (2)
  - Skin irritation [None]
  - Condition aggravated [None]

NARRATIVE: CASE EVENT DATE: 20180630
